FAERS Safety Report 7334934-5 (Version None)
Quarter: 2011Q1

REPORT INFORMATION
  Report Type: 
  Country: None (occurrence: None)
  Receive Date: 20110307
  Receipt Date: 20110224
  Transmission Date: 20110831
  Serious: Yes (Death, Life-Threatening, Hospitalization)
  Sender: FDA-Public Use
  Company Number: BR-NOVOPROD-324003

PATIENT
  Age: 89 Year
  Sex: Male
  Weight: 75 kg

DRUGS (1)
  1. LEVEMIR [Suspect]
     Indication: TYPE 2 DIABETES MELLITUS
     Dosage: 14 U, QD
     Route: 058
     Dates: start: 20100924, end: 20101212

REACTIONS (2)
  - PULMONARY FIBROSIS [None]
  - CONDITION AGGRAVATED [None]
